FAERS Safety Report 9768406 (Version 2)
Quarter: 2014Q1

REPORT INFORMATION
  Report Type: Spontaneous
  Country: JP (occurrence: JP)
  Receive Date: 20131217
  Receipt Date: 20140113
  Transmission Date: 20141002
  Serious: No
  Sender: FDA-Public Use
  Company Number: JP-B.I. PHARMACEUTICALS,INC./RIDGEFIELD-2013-BI-40936NB

PATIENT
  Age: 77 Year
  Sex: Male
  Weight: 63.2 kg

DRUGS (6)
  1. PRAZAXA [Suspect]
     Indication: ATRIAL FIBRILLATION
     Dosage: 300 MG
     Route: 048
     Dates: start: 20130507, end: 20130814
  2. PRAZAXA [Suspect]
     Dosage: 220 MG
     Route: 048
     Dates: start: 20130815
  3. LOXONIN/LOXOPROFEN SODIUM HYDRATE [Concomitant]
     Indication: PAIN IN EXTREMITY
     Dosage: 120 MG
     Route: 048
     Dates: start: 20130509, end: 20131204
  4. LOXONIN/LOXOPROFEN SODIUM HYDRATE [Concomitant]
     Dosage: 100 MG
     Route: 048
     Dates: start: 20130509
  5. MUCOSTA / REBAMIPIDE [Concomitant]
     Indication: GASTRITIS
     Dosage: 200 MG
     Route: 048
     Dates: start: 20130509
  6. MAGMITT / MAGNESIUM OXIDE [Concomitant]
     Indication: CONSTIPATION
     Dosage: 990 MG
     Route: 048
     Dates: start: 20130619, end: 20131204

REACTIONS (2)
  - Hyperkalaemia [Recovered/Resolved]
  - Blood urea increased [Unknown]
